FAERS Safety Report 4435572-4 (Version None)
Quarter: 2004Q3

REPORT INFORMATION
  Report Type: 
  Country: None (occurrence: None)
  Receive Date: 20040726
  Receipt Date: 20040528
  Transmission Date: 20050211
  Serious: No
  Sender: FDA-Public Use
  Company Number: USA040567149

PATIENT
  Age: 80 Year
  Sex: Female

DRUGS (8)
  1. FORTEO [Suspect]
     Indication: OSTEOPOROSIS
     Dosage: 20 UG DAY
     Dates: start: 20040430
  2. DARVOCET-N 100 [Concomitant]
  3. K-DUR 10 [Concomitant]
  4. ACIPHEX [Concomitant]
  5. COUMADIN [Concomitant]
  6. VITAMIN D [Concomitant]
  7. CELEXA [Concomitant]
  8. LOPID [Concomitant]

REACTIONS (2)
  - CHEST PAIN [None]
  - DYSPNOEA [None]
